FAERS Safety Report 12721137 (Version 5)
Quarter: 2016Q4

REPORT INFORMATION
  Report Type: Spontaneous
  Country: FR (occurrence: FR)
  Receive Date: 20160907
  Receipt Date: 20161222
  Transmission Date: 20170207
  Serious: Yes (Disabling, Other)
  Sender: FDA-Public Use
  Company Number: FR-SA-2016SA160445

PATIENT
  Age: 67 Year
  Sex: Male
  Weight: 105 kg

DRUGS (12)
  1. STILNOX [Suspect]
     Active Substance: ZOLPIDEM TARTRATE
     Indication: INSOMNIA
     Route: 048
     Dates: start: 1994
  2. ZOLPIDEM [Suspect]
     Active Substance: ZOLPIDEM\ZOLPIDEM TARTRATE
     Indication: SLEEP DISORDER
     Route: 048
     Dates: end: 201602
  3. KESTINLYO [Concomitant]
     Active Substance: EBASTINE
     Indication: ASTHMA
     Route: 048
     Dates: start: 2010
  4. SINGULAIR [Concomitant]
     Active Substance: MONTELUKAST SODIUM
     Indication: ASTHMA
     Route: 048
     Dates: start: 2010
  5. TEMESTA [Concomitant]
     Active Substance: LORAZEPAM
     Route: 065
  6. ZOLPIDEM [Suspect]
     Active Substance: ZOLPIDEM\ZOLPIDEM TARTRATE
     Indication: SLEEP DISORDER
     Route: 048
  7. ZOLPIDEM [Suspect]
     Active Substance: ZOLPIDEM\ZOLPIDEM TARTRATE
     Indication: SLEEP DISORDER
     Route: 048
  8. ZOLPIDEM [Suspect]
     Active Substance: ZOLPIDEM\ZOLPIDEM TARTRATE
     Indication: SLEEP DISORDER
     Route: 048
     Dates: end: 201602
  9. STILNOX [Suspect]
     Active Substance: ZOLPIDEM TARTRATE
     Indication: SLEEP DISORDER
     Route: 048
     Dates: start: 19960606, end: 201601
  10. SERETIDE [Concomitant]
     Active Substance: FLUTICASONE PROPIONATE\SALMETEROL XINAFOATE
     Indication: ASTHMA
     Route: 055
     Dates: start: 2010
  11. STILNOX [Suspect]
     Active Substance: ZOLPIDEM TARTRATE
     Indication: SLEEP DISORDER
     Route: 048
     Dates: start: 1994
  12. STILNOX [Suspect]
     Active Substance: ZOLPIDEM TARTRATE
     Indication: INSOMNIA
     Route: 048
     Dates: start: 19960606, end: 201601

REACTIONS (34)
  - Tinnitus [Not Recovered/Not Resolved]
  - Candida infection [Not Recovered/Not Resolved]
  - Mental disorder [Unknown]
  - Aggression [Not Recovered/Not Resolved]
  - Hallucination [Unknown]
  - Depression [Unknown]
  - Fall [Unknown]
  - Drug dependence [Unknown]
  - Irritability [Not Recovered/Not Resolved]
  - Confusional state [Unknown]
  - Sperm concentration decreased [Not Recovered/Not Resolved]
  - Nightmare [Recovered/Resolved]
  - Abnormal behaviour [Unknown]
  - Incorrect drug administration duration [Unknown]
  - Libido decreased [Not Recovered/Not Resolved]
  - Anxiety [Unknown]
  - Stress [Unknown]
  - Psychotic disorder [Unknown]
  - Fatigue [Unknown]
  - Drug effect decreased [Unknown]
  - Libido disorder [Not Recovered/Not Resolved]
  - Asthma [Not Recovered/Not Resolved]
  - Insomnia [Not Recovered/Not Resolved]
  - Somnolence [Not Recovered/Not Resolved]
  - Mental disorder [Not Recovered/Not Resolved]
  - Muscular weakness [Not Recovered/Not Resolved]
  - Drug ineffective [Unknown]
  - Agitation [Unknown]
  - Amnesia [Not Recovered/Not Resolved]
  - Urinary retention [Recovered/Resolved]
  - Lung disorder [Not Recovered/Not Resolved]
  - Tension [Unknown]
  - Diplopia [Not Recovered/Not Resolved]
  - Ataxia [Not Recovered/Not Resolved]

NARRATIVE: CASE EVENT DATE: 2000
